FAERS Safety Report 8532897-8 (Version None)
Quarter: 2012Q3

REPORT INFORMATION
  Report Type: 
  Country: None (occurrence: None)
  Receive Date: 20120712
  Receipt Date: 20120629
  Transmission Date: 20120928
  Serious: Yes (Other)
  Sender: FDA-Public Use
  Company Number: DKLU1083029

PATIENT

DRUGS (1)
  1. NEOPROFEN [Suspect]
     Indication: PATENT DUCTUS ARTERIOSUS

REACTIONS (1)
  - HAEMORRHAGE INTRACRANIAL [None]
